FAERS Safety Report 6279468-4 (Version None)
Quarter: 2009Q3

REPORT INFORMATION
  Report Type: 
  Country: None (occurrence: None)
  Receive Date: 20090721
  Receipt Date: 20090710
  Transmission Date: 20100115
  Serious: Yes (Hospitalization)
  Sender: FDA-Public Use
  Company Number: 2009AL004672

PATIENT
  Sex: Female

DRUGS (1)
  1. EPIRUBICIN HCL [Suspect]

REACTIONS (2)
  - ANAL SPHINCTER ATONY [None]
  - DEPRESSED LEVEL OF CONSCIOUSNESS [None]
